FAERS Safety Report 8564584-4 (Version None)
Quarter: 2012Q3

REPORT INFORMATION
  Report Type: 
  Country: None (occurrence: None)
  Receive Date: 20120727
  Receipt Date: 20120727
  Transmission Date: 20120928
  Serious: Yes (Other)
  Sender: FDA-Public Use
  Company Number: None

PATIENT
  Age: 74 Year
  Sex: Female
  Weight: 45.3597 kg

DRUGS (2)
  1. ERLOTINIB HYDROCHLORIDE [Concomitant]
  2. ERLOTINIB HYDROCHLORIDE [Suspect]
     Indication: NON-SMALL CELL LUNG CANCER
     Dosage: 150 MG DAILY PO
     Route: 048
     Dates: start: 20111029, end: 20120614

REACTIONS (3)
  - SKIN DISCOLOURATION [None]
  - SKIN LESION [None]
  - RASH [None]
